FAERS Safety Report 20756951 (Version 1)
Quarter: 2022Q2

REPORT INFORMATION
  Report Type: Spontaneous
  Country: US (occurrence: None)
  Receive Date: 20220427
  Receipt Date: 20220427
  Transmission Date: 20220721
  Serious: No
  Sender: FDA-Public Use
  Company Number: 2022A154939

PATIENT
  Sex: Female
  Weight: 61.2 kg

DRUGS (3)
  1. BYDUREON BCISE [Suspect]
     Active Substance: EXENATIDE
     Indication: Diabetes mellitus
     Route: 058
  2. ELIQUIS [Concomitant]
     Active Substance: APIXABAN
     Route: 065
  3. LEVOTHYROXINE [Concomitant]
     Active Substance: LEVOTHYROXINE
     Route: 065

REACTIONS (5)
  - Blood glucose abnormal [Unknown]
  - Glycosylated haemoglobin abnormal [Unknown]
  - Hypoaesthesia [Unknown]
  - Mobility decreased [Unknown]
  - Wrong technique in device usage process [Unknown]
